FAERS Safety Report 6653012-1 (Version None)
Quarter: 2010Q1

REPORT INFORMATION
  Report Type: 
  Country: None (occurrence: None)
  Receive Date: 20100326
  Receipt Date: 20100315
  Transmission Date: 20100710
  Serious: Yes (Hospitalization, Other)
  Sender: FDA-Public Use
  Company Number: PHEH2008US07467

PATIENT
  Sex: Male
  Weight: 94.785 kg

DRUGS (50)
  1. ZOMETA [Suspect]
     Dosage: 4 MG, UNK
     Dates: start: 20040907, end: 20071101
  2. AREDIA [Suspect]
     Dosage: 90 MG OVER 2 HRS
     Route: 042
     Dates: start: 20040801
  3. THALIDOMIDE [Concomitant]
     Dosage: UNK
     Dates: start: 20040921
  4. THALIDOMIDE [Concomitant]
     Dosage: UNK
  5. STEROIDS NOS [Concomitant]
  6. CHEMOTHERAPEUTICS NOS [Concomitant]
  7. PREDNISONE TAB [Concomitant]
     Dosage: 90 MG, UNK
  8. PREDNISONE TAB [Concomitant]
     Dosage: 50 MG, PER DAY X 7 DAYS PER MONTH
     Dates: end: 20080704
  9. RITUXAN [Concomitant]
     Dosage: ONCE WEEKLY X 4 WEEKS
     Dates: start: 20030301
  10. DECADRON [Concomitant]
     Dosage: UNK
     Dates: start: 20040921
  11. TRAMADOL HCL [Concomitant]
     Dosage: 50 MG, Q6H
     Route: 048
  12. NEURONTIN [Concomitant]
     Dosage: 100 MG, TID
     Route: 048
  13. VALIUM [Concomitant]
     Indication: ANXIETY
     Dosage: 5 MG, PRN
  14. NEXIUM [Concomitant]
     Dosage: 20 MG, QD
     Route: 048
  15. AMITRIPTYLINE HCL [Concomitant]
     Dosage: 25 MG, BID
     Route: 048
  16. PERCOCET [Concomitant]
     Dosage: 5/325 MG, TID
  17. VERAPAMIL [Concomitant]
     Dosage: 240 MG, DAILY
     Route: 048
  18. ADVAIR DISKUS 100/50 [Concomitant]
     Dosage: 100/50 1 PUFF DAILY
  19. SINGULAIR [Concomitant]
     Dosage: 10 MG, DAILY
     Route: 048
  20. ATIVAN [Concomitant]
     Dosage: 1 MG, BID
     Route: 048
  21. VELCADE [Concomitant]
     Indication: MULTIPLE MYELOMA
     Dosage: UNK
     Dates: start: 20080301, end: 20080501
  22. MELPHALAN HYDROCHLORIDE [Concomitant]
     Dosage: 8 MG, UNK
     Dates: end: 20080704
  23. MARIJUANA [Concomitant]
  24. CYTOXAN [Concomitant]
     Dosage: 100 MG, DAILY
  25. PROTONIX [Concomitant]
     Dosage: 40 MG, UNK
     Route: 048
  26. METOPROLOL [Concomitant]
     Dosage: 50 MG, UNK
  27. CLINDAMYCIN [Concomitant]
  28. FLUCONAZOLE [Concomitant]
  29. NICOTINE [Concomitant]
  30. COMPAZINE [Concomitant]
     Dosage: 10 MG, Q8H
     Route: 048
  31. CHANTIX [Concomitant]
  32. PROZAC [Concomitant]
  33. VICODIN [Concomitant]
  34. CEFTIN [Concomitant]
  35. ROXICET [Concomitant]
  36. COMBIVENT                               /GFR/ [Concomitant]
  37. PROTONIX [Concomitant]
  38. NICODERM [Concomitant]
  39. PNEUMOCOCCAL VACCINE [Concomitant]
  40. GABAPENTIN [Concomitant]
     Dosage: UNK / TID
  41. OMEPRAZOLE [Concomitant]
     Dosage: UNK
  42. REVLIMID [Concomitant]
     Dosage: UNK
  43. DEXAMETHASONE [Concomitant]
     Dosage: UNK
  44. DESMOPRESSIN ACETATE [Concomitant]
     Dosage: UNK
  45. ZOLOFT [Concomitant]
     Dosage: 50 MG / QD
     Route: 048
  46. SENNA [Concomitant]
     Dosage: UNK  / BID PRN
     Route: 048
  47. COLACE [Concomitant]
     Dosage: 100 MG / BID
     Route: 048
  48. OXYCONTIN [Concomitant]
     Dosage: 10 MG / DAILY EVERY 12 HRS
     Route: 048
  49. PROCRIT                            /00909301/ [Concomitant]
     Dosage: UNK
  50. AUGMENTIN                               /SCH/ [Concomitant]

REACTIONS (29)
  - ANAEMIA [None]
  - ANHEDONIA [None]
  - ANXIETY [None]
  - BONE DISORDER [None]
  - BONE LESION [None]
  - DECREASED APPETITE [None]
  - DEPRESSION [None]
  - DYSPEPSIA [None]
  - ENDODONTIC PROCEDURE [None]
  - GASTROOESOPHAGEAL REFLUX DISEASE [None]
  - GINGIVAL BLEEDING [None]
  - GINGIVAL DISORDER [None]
  - HYPERTENSION [None]
  - INJURY [None]
  - INTESTINAL OBSTRUCTION [None]
  - LUNG NEOPLASM [None]
  - MASTICATION DISORDER [None]
  - MENTAL DISORDER [None]
  - MULTIPLE MYELOMA [None]
  - NEUROPATHY PERIPHERAL [None]
  - ORAL DISORDER [None]
  - OSTEONECROSIS [None]
  - PAIN [None]
  - PAIN IN JAW [None]
  - SPINAL COMPRESSION FRACTURE [None]
  - STEM CELL TRANSPLANT [None]
  - SUICIDAL IDEATION [None]
  - TOOTH EXTRACTION [None]
  - WEIGHT DECREASED [None]
